FAERS Safety Report 19287276 (Version 1)
Quarter: 2021Q2

REPORT INFORMATION
  Report Type: Spontaneous
  Country: KR (occurrence: KR)
  Receive Date: 20210522
  Receipt Date: 20210522
  Transmission Date: 20210717
  Serious: Yes (Other)
  Sender: FDA-Public Use
  Company Number: KR-LEADINGPHARMA-KR-2021LEALIT00164

PATIENT
  Age: 57 Year
  Sex: Female

DRUGS (5)
  1. METHYLPREDNISOLONE. [Interacting]
     Active Substance: METHYLPREDNISOLONE
     Indication: OPTIC NEUROPATHY
     Route: 042
  2. EPINEPHRINE. [Suspect]
     Active Substance: EPINEPHRINE
     Indication: GENERAL ANAESTHESIA
     Dosage: 1:100,000
     Route: 065
  3. PREDNISONE. [Interacting]
     Active Substance: PREDNISONE
     Indication: OPTIC NEUROPATHY
     Dosage: 1 MG/KG/DAY
     Route: 048
  4. LIDOCAINE. [Suspect]
     Active Substance: LIDOCAINE
     Indication: GENERAL ANAESTHESIA
     Dosage: 2 ML OF 1%
     Route: 065
  5. EPINEPHRINE. [Suspect]
     Active Substance: EPINEPHRINE
     Dosage: 2 ML OF 1:1000
     Route: 065

REACTIONS (2)
  - Optic neuropathy [Recovering/Resolving]
  - Off label use [Unknown]
